FAERS Safety Report 6175067-3 (Version None)
Quarter: 2009Q2

REPORT INFORMATION
  Report Type: 
  Country: None (occurrence: None)
  Receive Date: 20090430
  Receipt Date: 20090217
  Transmission Date: 20091009
  Serious: No
  Sender: FDA-Public Use
  Company Number: US-ASTRAZENECA-2009UW04493

PATIENT
  Sex: Female
  Weight: 83.9 kg

DRUGS (3)
  1. NEXIUM [Suspect]
     Route: 048
     Dates: start: 20050101
  2. NEXIUM [Suspect]
     Route: 048
     Dates: start: 20050101
  3. SINGULAIR [Concomitant]

REACTIONS (3)
  - DYSPEPSIA [None]
  - HYPOPHAGIA [None]
  - INSOMNIA [None]
